FAERS Safety Report 7363123-3 (Version None)
Quarter: 2011Q1

REPORT INFORMATION
  Report Type: 
  Country: None (occurrence: None)
  Receive Date: 20110321
  Receipt Date: 20100917
  Transmission Date: 20110831
  Serious: No
  Sender: FDA-Public Use
  Company Number: US-BAYER-201036747NA

PATIENT
  Sex: Female

DRUGS (1)
  1. MIRENA [Suspect]
     Dosage: 50 MCG/24HR, CONT
     Route: 015
     Dates: start: 20100908

REACTIONS (1)
  - POST PROCEDURAL HAEMORRHAGE [None]
